FAERS Safety Report 22381470 (Version 1)
Quarter: 2023Q2

REPORT INFORMATION
  Report Type: Spontaneous
  Country: JP (occurrence: JP)
  Receive Date: 20230530
  Receipt Date: 20230530
  Transmission Date: 20230722
  Serious: Yes (Other)
  Sender: FDA-Public Use
  Company Number: JP-AMGEN-JPNSP2023088374

PATIENT
  Age: 58 Year
  Sex: Male

DRUGS (2)
  1. EVOLOCUMAB [Suspect]
     Active Substance: EVOLOCUMAB
     Indication: Dyslipidaemia
     Dosage: UNK
     Route: 065
  2. Immunoglobulin [Concomitant]
     Indication: Necrotising myositis
     Dosage: UNK

REACTIONS (2)
  - Coronary artery stenosis [Recovered/Resolved]
  - Arteriosclerosis [Recovered/Resolved]
